FAERS Safety Report 7064664-9 (Version None)
Quarter: 2010Q4

REPORT INFORMATION
  Report Type: 
  Country: None (occurrence: None)
  Receive Date: 20101019
  Receipt Date: 20101005
  Transmission Date: 20110411
  Serious: Yes (Life-Threatening, Hospitalization, Other)
  Sender: FDA-Public Use
  Company Number: WAES 0901USA02587

PATIENT
  Age: 53 Year
  Sex: Female

DRUGS (7)
  1. VYTORIN [Suspect]
     Indication: ACUTE CORONARY SYNDROME
     Route: 048
     Dates: start: 20090101, end: 20100926
  2. PLACEBO [Suspect]
     Indication: ACUTE CORONARY SYNDROME
     Route: 048
     Dates: start: 20070115, end: 20090120
  3. PLACEBO [Suspect]
     Indication: ACUTE CORONARY SYNDROME
     Route: 048
     Dates: start: 20090101, end: 20100926
  4. PLACEBO [Suspect]
     Indication: ACUTE CORONARY SYNDROME
     Route: 048
     Dates: start: 20070115, end: 20090120
  5. PLACEBO [Suspect]
     Indication: ACUTE CORONARY SYNDROME
     Route: 048
     Dates: start: 20090101, end: 20100926
  6. ASPIRIN [Concomitant]
  7. METOPROLOL [Concomitant]

REACTIONS (11)
  - ABNORMAL BEHAVIOUR [None]
  - ALOPECIA [None]
  - AMNESIA [None]
  - BREAST CANCER METASTATIC [None]
  - CELLULITIS [None]
  - CEREBELLAR TUMOUR [None]
  - METASTASES TO LIVER [None]
  - METASTASES TO LUNG [None]
  - METASTASES TO LYMPH NODES [None]
  - METASTASES TO SPINE [None]
  - SOMNOLENCE [None]
